FAERS Safety Report 9543865 (Version 1)
Quarter: 2013Q3

REPORT INFORMATION
  Report Type: Spontaneous
  Country: JP (occurrence: JP)
  Receive Date: 20130923
  Receipt Date: 20130923
  Transmission Date: 20140515
  Serious: Yes (Other)
  Sender: FDA-Public Use
  Company Number: JP-GLAXOSMITHKLINE-B0869805A

PATIENT
  Age: 24 Year
  Sex: Female

DRUGS (6)
  1. PAXIL [Suspect]
     Indication: PANIC DISORDER
     Dosage: 5MG PER DAY
     Route: 048
     Dates: start: 20110704, end: 20120127
  2. PAXIL [Suspect]
     Indication: PANIC DISORDER
     Route: 048
     Dates: start: 20120127, end: 20120907
  3. PAXIL [Suspect]
     Indication: PANIC DISORDER
     Dosage: 5MG PER DAY
     Route: 048
     Dates: start: 20120907, end: 20121001
  4. PAXIL [Suspect]
     Indication: PANIC DISORDER
     Dosage: 5MG PER DAY
     Route: 048
     Dates: start: 20121127, end: 20130523
  5. CONSTAN [Concomitant]
     Indication: PANIC DISORDER
     Route: 048
     Dates: start: 20110704, end: 20110715
  6. CONSTAN [Concomitant]
     Indication: PANIC DISORDER
     Dosage: .4MG PER DAY
     Route: 048
     Dates: start: 20110715, end: 20120601

REACTIONS (3)
  - Abortion threatened [Recovered/Resolved]
  - Exposure during pregnancy [Unknown]
  - Live birth [Unknown]
